FAERS Safety Report 4458397-2 (Version None)
Quarter: 2004Q3

REPORT INFORMATION
  Report Type: 
  Country: None (occurrence: None)
  Receive Date: 20040924
  Receipt Date: 20040916
  Transmission Date: 20050211
  Serious: Yes (Other)
  Sender: FDA-Public Use
  Company Number: JP-MERCK-0409USA01670

PATIENT

DRUGS (3)
  1. [THERAPY UNSPECIFIED] [Concomitant]
     Route: 048
  2. COZAAR [Suspect]
     Route: 048
  3. RHEUMATREX [Suspect]
     Route: 048

REACTIONS (2)
  - DYSGEUSIA [None]
  - PANCYTOPENIA [None]
